FAERS Safety Report 12500294 (Version 3)
Quarter: 2016Q3

REPORT INFORMATION
  Report Type: Spontaneous
  Country: US (occurrence: US)
  Receive Date: 20160627
  Receipt Date: 20160901
  Transmission Date: 20161109
  Serious: Yes (Hospitalization)
  Sender: FDA-Public Use
  Company Number: US-RELYPSA-RLY2016001159

PATIENT
  Sex: Male

DRUGS (11)
  1. VELTASSA [Suspect]
     Active Substance: PATIROMER
     Indication: HYPERKALAEMIA
     Dosage: 8.4 G, QD
     Dates: start: 20160518, end: 20160608
  2. FLOMAX [Concomitant]
     Active Substance: TAMSULOSIN HYDROCHLORIDE
  3. LANTUS [Concomitant]
     Active Substance: INSULIN GLARGINE
  4. TRADJENTA [Concomitant]
     Active Substance: LINAGLIPTIN
  5. GLIMEPIRIDE. [Concomitant]
     Active Substance: GLIMEPIRIDE
  6. ASPIRIN. [Concomitant]
     Active Substance: ASPIRIN
  7. CARVEDILOL. [Concomitant]
     Active Substance: CARVEDILOL
  8. PLAVIX [Concomitant]
     Active Substance: CLOPIDOGREL BISULFATE
  9. SIMVASTATIN. [Concomitant]
     Active Substance: SIMVASTATIN
  10. LISINOPRIL. [Concomitant]
     Active Substance: LISINOPRIL
  11. LASIX [Concomitant]
     Active Substance: FUROSEMIDE

REACTIONS (3)
  - Abdominal pain upper [Unknown]
  - Anorectal disorder [Unknown]
  - Constipation [Unknown]
